FAERS Safety Report 17263025 (Version 6)
Quarter: 2025Q3

REPORT INFORMATION
  Report Type: Spontaneous
  Country: US (occurrence: US)
  Receive Date: 20200113
  Receipt Date: 20250729
  Transmission Date: 20251020
  Serious: No
  Sender: PFIZER
  Company Number: US-PFIZER INC-2019443655

PATIENT
  Age: 65 Year
  Sex: Male
  Weight: 97 kg

DRUGS (7)
  1. XELJANZ XR [Suspect]
     Active Substance: TOFACITINIB CITRATE
     Indication: Rheumatoid arthritis
     Dosage: 11 MG, 1X/DAY
     Dates: start: 2017
  2. POTASSIUM [Concomitant]
     Active Substance: POTASSIUM
  3. CLOPIDOGREL [Concomitant]
     Active Substance: CLOPIDOGREL BISULFATE
     Indication: Blood pressure abnormal
  4. LISINOPRIL [Concomitant]
     Active Substance: LISINOPRIL
     Indication: Cardiac disorder
     Dosage: 10 MG, DAILY
     Dates: start: 2017
  5. AMLODIPINE [Concomitant]
     Active Substance: AMLODIPINE BESYLATE
     Dosage: 10 MG, DAILY
     Dates: start: 2017
  6. LOVASTATIN [Concomitant]
     Active Substance: LOVASTATIN
  7. TAMSULOSIN [Concomitant]
     Active Substance: TAMSULOSIN

REACTIONS (2)
  - Mental disorder [Unknown]
  - Memory impairment [Unknown]
